FAERS Safety Report 8179138-1 (Version None)
Quarter: 2012Q1

REPORT INFORMATION
  Report Type: 
  Country: None (occurrence: None)
  Receive Date: 20120227
  Receipt Date: 20120220
  Transmission Date: 20120608
  Serious: Yes (Death, Hospitalization)
  Sender: FDA-Public Use
  Company Number: 1000027433

PATIENT
  Age: 72 Year
  Sex: Male

DRUGS (5)
  1. BITAFANT F (FURSULTIAMINE HYDROCHLORIDE) [Concomitant]
  2. ANPLAG (SARPOGRELATE HYDROCHLORIDE) [Concomitant]
  3. MEMANTINE HYDROCHLORIDE [Suspect]
     Indication: DEMENTIA
     Dosage: 5;10 MG (5 MG, 1 IN 1 D) ORAL
     Route: 048
     Dates: start: 20110607, end: 20110101
  4. MEMANTINE HYDROCHLORIDE [Suspect]
     Indication: DEMENTIA
     Dosage: 5;10 MG (5 MG, 1 IN 1 D) ORAL
     Route: 048
     Dates: start: 20110101, end: 20111212
  5. ARICEPT [Concomitant]

REACTIONS (1)
  - HEPATITIS ACUTE [None]
